FAERS Safety Report 5574632-1 (Version None)
Quarter: 2007Q4

REPORT INFORMATION
  Report Type: 
  Country: None (occurrence: None)
  Receive Date: 20071227
  Receipt Date: 20071214
  Transmission Date: 20080405
  Serious: Yes (Disabling)
  Sender: FDA-Public Use
  Company Number: GB-ROCHE-536955

PATIENT
  Age: 75 Year
  Sex: Male
  Weight: 74 kg

DRUGS (4)
  1. BONIVA [Suspect]
     Indication: OSTEOPOROSIS
     Route: 048
     Dates: start: 20070615, end: 20070910
  2. ARTHROTEC [Concomitant]
     Indication: PAIN
     Route: 048
     Dates: start: 20070529
  3. FELDENE [Concomitant]
     Indication: PAIN
     Route: 048
     Dates: start: 20070615
  4. ACETAMINOPHEN [Concomitant]
     Indication: PAIN
     Dosage: DOSE RPTD AS DF.
     Dates: start: 20050831

REACTIONS (1)
  - OSTEONECROSIS [None]
